FAERS Safety Report 15077118 (Version 1)
Quarter: 2018Q2

REPORT INFORMATION
  Report Type: Spontaneous
  Country: US (occurrence: US)
  Receive Date: 20180607
  Receipt Date: 20180607
  Transmission Date: 20180711
  Serious: No
  Sender: FDA-Public Use
  Company Number: None

PATIENT

DRUGS (1)
  1. ICY HOT MEDICATED [Suspect]
     Active Substance: MENTHOL

REACTIONS (2)
  - Medical device site burn [None]
  - Chemical burn of skin [None]

NARRATIVE: CASE EVENT DATE: 20180131
